FAERS Safety Report 9529698 (Version 1)
Quarter: 2013Q3

REPORT INFORMATION
  Report Type: Spontaneous
  Country: FR (occurrence: FR)
  Receive Date: 20130917
  Receipt Date: 20130917
  Transmission Date: 20140515
  Serious: Yes (Hospitalization)
  Sender: FDA-Public Use
  Company Number: PHHY2013FR102325

PATIENT
  Age: 55 Year
  Sex: Male

DRUGS (1)
  1. TASIGNA [Suspect]
     Indication: CHRONIC MYELOID LEUKAEMIA
     Dosage: 800 MG, QD
     Route: 048

REACTIONS (3)
  - Ischaemia [Recovered/Resolved with Sequelae]
  - Necrosis [Recovered/Resolved with Sequelae]
  - Infection [Unknown]
